FAERS Safety Report 8931201 (Version 2)
Quarter: 2012Q4

REPORT INFORMATION
  Report Type: 
  Country: US (occurrence: US)
  Receive Date: 20121121
  Receipt Date: 20121212
  Transmission Date: 20130627
  Serious: Yes (Death, Hospitalization, Other)
  Sender: FDA-Public Use
  Company Number: US-ASTELLAS-1095414

PATIENT
  Sex: Male

DRUGS (1)
  1. TARCEVA [Suspect]
     Indication: PANCREATIC CARCINOMA
     Route: 048
     Dates: start: 20070307

REACTIONS (4)
  - Pancreatic carcinoma metastatic [Fatal]
  - Gastrointestinal haemorrhage [Unknown]
  - Metastases to liver [Unknown]
  - Ascites [Unknown]
